FAERS Safety Report 17771018 (Version 1)
Quarter: 2020Q2

REPORT INFORMATION
  Report Type: Spontaneous
  Country: US (occurrence: US)
  Receive Date: 20200512
  Receipt Date: 20200512
  Transmission Date: 20200714
  Serious: Yes (Disabling)
  Sender: FDA-Public Use
  Company Number: None

PATIENT
  Age: 54 Year
  Sex: Female
  Weight: 85.5 kg

DRUGS (11)
  1. KIRK;AND BRAND MATURE MVI [Concomitant]
  2. VITAMIN D3 [Concomitant]
     Active Substance: CHOLECALCIFEROL
  3. PROPRANOLOL ER [Concomitant]
     Active Substance: PROPRANOLOL HYDROCHLORIDE
  4. ESTRADIOL 0.025 MG/DAY TRANSDERMAL SYSTEM [Suspect]
     Active Substance: ESTRADIOL
     Indication: HORMONE REPLACEMENT THERAPY
     Dosage: ?          OTHER STRENGTH:MG/DAY;QUANTITY:1 PATCH(ES);OTHER FREQUENCY:EVERY WEEK;?
     Route: 062
  5. MICRONIZED PROGESTERONE [Concomitant]
  6. ROSUVASTATIN. [Concomitant]
     Active Substance: ROSUVASTATIN
  7. METFORMIN [Concomitant]
     Active Substance: METFORMIN HYDROCHLORIDE
  8. LANSOPRAZOLE. [Concomitant]
     Active Substance: LANSOPRAZOLE
  9. GLUCOSAMINE/CHONDROITIN [Concomitant]
  10. QUETIAPINE XR [Concomitant]
     Active Substance: QUETIAPINE
  11. LEVOTHYROXINE. [Concomitant]
     Active Substance: LEVOTHYROXINE

REACTIONS (4)
  - Vaginal haemorrhage [None]
  - Circumstance or information capable of leading to medication error [None]
  - Product adhesion issue [None]
  - Underdose [None]

NARRATIVE: CASE EVENT DATE: 20200505
